FAERS Safety Report 5411029-9 (Version None)
Quarter: 2007Q3

REPORT INFORMATION
  Report Type: 
  Country: None (occurrence: None)
  Receive Date: 20070713
  Receipt Date: 20070612
  Transmission Date: 20080115
  Serious: No
  Sender: FDA-Public Use
  Company Number: 2007SP002197

PATIENT
  Sex: Male

DRUGS (1)
  1. LUNESTA [Suspect]
     Dosage: 1 MG;GASTROSTOMY TUBE; 2 MG; GASTROSTOMY TUBE; 3 MG;GASTROSTOMY TUBE

REACTIONS (2)
  - DRUG INEFFECTIVE [None]
  - INSOMNIA [None]
